FAERS Safety Report 20819595 (Version 2)
Quarter: 2022Q3

REPORT INFORMATION
  Report Type: Spontaneous
  Country: US (occurrence: US)
  Receive Date: 20220512
  Receipt Date: 20220905
  Transmission Date: 20221027
  Serious: Yes (Other)
  Sender: FDA-Public Use
  Company Number: US-BRISTOL-MYERS SQUIBB COMPANY-2022-034399

PATIENT
  Age: 73 Year
  Sex: Male

DRUGS (2)
  1. REVLIMID [Suspect]
     Active Substance: LENALIDOMIDE
     Indication: Plasma cell myeloma
     Dosage: 10 MG BY MOUTH DAILY 1 WEEK ON AND 1 WEEK OFF WITH FULL GLASS OF WATER.
     Route: 048
     Dates: start: 20220501
  2. REVLIMID [Suspect]
     Active Substance: LENALIDOMIDE
     Dosage: TAKE 1 CAPSULE BY MOUTH DAILY FOR 1 WEEK ON AND 1 WEEK OFF WITH A FULL GLASS OF WATER
     Route: 048
     Dates: start: 20220501

REACTIONS (3)
  - Gastrointestinal infection [Recovered/Resolved]
  - Gastric ulcer [Recovered/Resolved]
  - Off label use [Unknown]
